FAERS Safety Report 15164452 (Version 4)
Quarter: 2019Q1

REPORT INFORMATION
  Report Type: Spontaneous
  Country: US (occurrence: US)
  Receive Date: 20180719
  Receipt Date: 20190131
  Transmission Date: 20190417
  Serious: No
  Sender: FDA-Public Use
  Company Number: US-AMGEN-USASP2018096996

PATIENT
  Sex: Male

DRUGS (5)
  1. METHOTREXATE SODIUM. [Concomitant]
     Active Substance: METHOTREXATE SODIUM
     Dosage: 250 MG/10 ML INJECT 0.8 CC, QWK
  2. MTX [Concomitant]
     Active Substance: METHOTREXATE SODIUM
     Indication: BONE EROSION
     Dosage: UNK
  3. ENBREL [Suspect]
     Active Substance: ETANERCEPT
     Indication: PRODUCT USED FOR UNKNOWN INDICATION
     Dosage: UNK UNK, QWK
     Route: 065
  4. MTX [Concomitant]
     Active Substance: METHOTREXATE SODIUM
     Dosage: 0.8 CC, QWK
  5. XELJANZ XR [Concomitant]
     Active Substance: TOFACITINIB CITRATE
     Dosage: UNK UNK, QD
     Route: 048

REACTIONS (2)
  - Injection site pain [Not Recovered/Not Resolved]
  - Injection site recall reaction [Not Recovered/Not Resolved]
